FAERS Safety Report 4488214-6 (Version None)
Quarter: 2004Q4

REPORT INFORMATION
  Report Type: 
  Country: None (occurrence: None)
  Receive Date: 20041026
  Receipt Date: 20041008
  Transmission Date: 20050328
  Serious: Yes (Hospitalization)
  Sender: FDA-Public Use
  Company Number: US_0408105096

PATIENT
  Age: 57 Year
  Sex: Female

DRUGS (20)
  1. GEMCITABINE HYDROCHLORIDE-IV (GEMCITABINE) [Suspect]
     Indication: BREAST CANCER RECURRENT
     Dosage: 1250 MG/M2 OTHER
     Route: 050
     Dates: start: 20040824
  2. PACLITAXEL [Suspect]
     Indication: BREAST CANCER RECURRENT
     Dosage: 175 MG/M2 OTHER
     Route: 050
     Dates: start: 20040824
  3. EMEND [Concomitant]
  4. TESSALON [Concomitant]
  5. ZOFRAN [Concomitant]
  6. EXTRA STRENGTH TYLENOL [Concomitant]
  7. MOTRIN [Concomitant]
  8. TUSSIONEX [Concomitant]
  9. ALOXI (PALONOSETRON HYDROCHLORIDE) [Concomitant]
  10. DECADRON [Concomitant]
  11. DIPHENHYDRAMINE [Concomitant]
  12. CIMETIDINE [Concomitant]
  13. ARANESP [Concomitant]
  14. AMBIEN [Concomitant]
  15. TYLENOL W/ CODEINE NO. 3 [Concomitant]
  16. ANZEMET (DOLASETRON MESILATE) [Concomitant]
  17. CYTOXAN [Concomitant]
  18. DIGOXIN [Concomitant]
  19. LISINOPRIL [Concomitant]
  20. LASIX [Concomitant]

REACTIONS (31)
  - ALANINE AMINOTRANSFERASE INCREASED [None]
  - ANAEMIA [None]
  - ASPARTATE AMINOTRANSFERASE INCREASED [None]
  - ATRIOVENTRICULAR BLOCK COMPLETE [None]
  - BLOOD ALKALINE PHOSPHATASE INCREASED [None]
  - BLOOD BILIRUBIN INCREASED [None]
  - BLOOD CREATININE INCREASED [None]
  - BLOOD UREA INCREASED [None]
  - BLOOD URINE PRESENT [None]
  - BREAST CELLULITIS [None]
  - CARDIAC FAILURE CONGESTIVE [None]
  - CARDIOMEGALY [None]
  - CONDITION AGGRAVATED [None]
  - CONFUSIONAL STATE [None]
  - DEHYDRATION [None]
  - DYSPNOEA [None]
  - HEART RATE INCREASED [None]
  - HYPOKALAEMIA [None]
  - INFUSION RELATED REACTION [None]
  - LUNG INFILTRATION [None]
  - NEUTROPENIA [None]
  - NEUTROPHIL PERCENTAGE INCREASED [None]
  - OCCULT BLOOD POSITIVE [None]
  - OXYGEN SATURATION DECREASED [None]
  - PANCYTOPENIA [None]
  - PLEURAL EFFUSION [None]
  - PNEUMONIA [None]
  - RENAL IMPAIRMENT [None]
  - THERAPEUTIC AGENT TOXICITY [None]
  - WHITE BLOOD CELL COUNT INCREASED [None]
  - WHITE BLOOD CELLS URINE [None]
